FAERS Safety Report 19758655 (Version 1)
Quarter: 2021Q3

REPORT INFORMATION
  Report Type: Spontaneous
  Country: US (occurrence: US)
  Receive Date: 20210829
  Receipt Date: 20210829
  Transmission Date: 20211014
  Serious: Yes (Other)
  Sender: FDA-Public Use
  Company Number: US-TEVA-2021-US-1945809

PATIENT
  Age: 62 Year
  Sex: Female

DRUGS (6)
  1. BIOTIN [Concomitant]
     Active Substance: BIOTIN
  2. CYSTINE [Concomitant]
     Active Substance: CYSTINE
  3. OMEPRAZOLE. [Suspect]
     Active Substance: OMEPRAZOLE
     Indication: GASTROINTESTINAL DISORDER
     Route: 065
  4. MELATONIN [Concomitant]
     Active Substance: MELATONIN
  5. MUCINEX [Concomitant]
     Active Substance: GUAIFENESIN
  6. SUCRALFATE. [Suspect]
     Active Substance: SUCRALFATE
     Indication: GASTROINTESTINAL DISORDER
     Route: 065

REACTIONS (4)
  - Paronychia [Unknown]
  - Pneumonia [Unknown]
  - Cough [Unknown]
  - Alopecia [Unknown]

NARRATIVE: CASE EVENT DATE: 20210807
